FAERS Safety Report 13608886 (Version 3)
Quarter: 2018Q2

REPORT INFORMATION
  Report Type: Report from Study
  Country: US (occurrence: US)
  Receive Date: 20170602
  Receipt Date: 20180601
  Transmission Date: 20180711
  Serious: Yes (Hospitalization, Other)
  Sender: FDA-Public Use
  Company Number: US-SA-2016SA148545

PATIENT
  Age: 58 Year
  Sex: Male

DRUGS (1)
  1. AGALSIDASE BETA [Suspect]
     Active Substance: AGALSIDASE BETA
     Indication: FABRY^S DISEASE
     Dosage: 70 MG,Q2
     Route: 041
     Dates: start: 20031201

REACTIONS (12)
  - Neuralgia [Recovering/Resolving]
  - Rash [Recovering/Resolving]
  - Loss of consciousness [Unknown]
  - Arthropod bite [Recovering/Resolving]
  - Peripheral swelling [Unknown]
  - Peripheral swelling [Not Recovered/Not Resolved]
  - Feeling abnormal [Unknown]
  - Infusion site pain [Unknown]
  - Dyspnoea [Recovered/Resolved]
  - Deafness [Not Recovered/Not Resolved]
  - Upper respiratory tract congestion [Recovered/Resolved]
  - Skin infection [Recovering/Resolving]

NARRATIVE: CASE EVENT DATE: 20170626
